FAERS Safety Report 7572020-X (Version None)
Quarter: 2011Q2

REPORT INFORMATION
  Report Type: 
  Country: None (occurrence: None)
  Receive Date: 20110624
  Receipt Date: 20110612
  Transmission Date: 20111010
  Serious: Yes (Other)
  Sender: FDA-Public Use
  Company Number: LV-PFIZER INC-LV-WYE-H12468709

PATIENT
  Age: 33 Year
  Sex: Female
  Weight: 69.1 kg

DRUGS (3)
  1. DESVENLAFAXINE SUCCINATE MONOHYDRATE [Suspect]
     Indication: MAJOR DEPRESSION
     Dosage: 50.0 MG, 1X/DAY
     Route: 048
     Dates: start: 20091114, end: 20091201
  2. ALPRAZOLAM [Concomitant]
     Indication: DEPRESSION
     Dosage: UNK
     Route: 065
     Dates: start: 20091130, end: 20091201
  3. BUSPIRONE HCL [Suspect]
     Dosage: 9 TABLETS OVERDOSE AMOUNT
     Route: 065
     Dates: start: 20091130, end: 20091130

REACTIONS (2)
  - INTENTIONAL OVERDOSE [None]
  - SUICIDE ATTEMPT [None]
